FAERS Safety Report 6221897-9 (Version None)
Quarter: 2009Q2

REPORT INFORMATION
  Report Type: 
  Country: None (occurrence: None)
  Receive Date: 20090608
  Receipt Date: 20090608
  Transmission Date: 20091009
  Serious: Yes (Life-Threatening, Hospitalization)
  Sender: FDA-Public Use
  Company Number: None

PATIENT
  Age: 59 Year
  Sex: Female

DRUGS (2)
  1. BACTRIM [Suspect]
     Indication: POST PROCEDURAL INFECTION
     Dosage: 800/160 IE 1X DAY MOUTH
     Route: 048
     Dates: start: 20070615, end: 20070707
  2. BACTRIM [Suspect]
     Indication: VIRAL INFECTION
     Dosage: 800/160 IE 1X DAY MOUTH
     Route: 048
     Dates: start: 20070615, end: 20070707

REACTIONS (12)
  - ABDOMINAL DISCOMFORT [None]
  - ABDOMINAL PAIN [None]
  - ANOREXIA [None]
  - BLINDNESS TRANSIENT [None]
  - CONFUSIONAL STATE [None]
  - DYSPNOEA [None]
  - FATIGUE [None]
  - HEADACHE [None]
  - NAUSEA [None]
  - OROPHARYNGEAL PAIN [None]
  - PYREXIA [None]
  - VOMITING [None]
